FAERS Safety Report 7814511-X (Version None)
Quarter: 2011Q4

REPORT INFORMATION
  Report Type: 
  Country: None (occurrence: None)
  Receive Date: 20111014
  Receipt Date: 20111014
  Transmission Date: 20120403
  Serious: Yes (Other)
  Sender: FDA-Public Use
  Company Number: PHHO2008US12374

PATIENT
  Sex: Female

DRUGS (8)
  1. OPIOIDS [Concomitant]
  2. LORTAB [Concomitant]
  3. FIORICET [Concomitant]
  4. BC POWDER [Concomitant]
  5. OXYMORPHONE HYDROCHLORIDE [Concomitant]
  6. MUSCLE RELAXANTS [Concomitant]
  7. EXCEDRIN (MIGRAINE) [Concomitant]
  8. GILENYA [Suspect]
     Indication: MULTIPLE SCLEROSIS
     Dosage: 0.5 MG, UNK
     Dates: start: 20070604

REACTIONS (16)
  - BLOOD TRIGLYCERIDES ABNORMAL [None]
  - WEIGHT DECREASED [None]
  - GAMMA-GLUTAMYLTRANSFERASE INCREASED [None]
  - LOW DENSITY LIPOPROTEIN ABNORMAL [None]
  - PLATELET COUNT ABNORMAL [None]
  - HAEMOGLOBIN ABNORMAL [None]
  - NEUTROPHIL COUNT ABNORMAL [None]
  - ELECTROCARDIOGRAM T WAVE AMPLITUDE DECREASED [None]
  - WHITE BLOOD CELL COUNT ABNORMAL [None]
  - APPETITE DISORDER [None]
  - ELECTROCARDIOGRAM T WAVE INVERSION [None]
  - BLOOD CHOLESTEROL ABNORMAL [None]
  - FOOT FRACTURE [None]
  - VISUAL IMPAIRMENT [None]
  - CARDIAC DISORDER [None]
  - ALANINE AMINOTRANSFERASE INCREASED [None]
